FAERS Safety Report 7731526-0 (Version None)
Quarter: 2011Q3

REPORT INFORMATION
  Report Type: 
  Country: None (occurrence: None)
  Receive Date: 20110906
  Receipt Date: 20110824
  Transmission Date: 20111222
  Serious: Yes (Hospitalization)
  Sender: FDA-Public Use
  Company Number: US-BAYER-2011-077054

PATIENT
  Age: 88 Year
  Sex: Female

DRUGS (3)
  1. AMLODIPINE [Concomitant]
     Indication: HYPERTENSION
  2. ACETAMINOPHEN [Suspect]
     Indication: OSTEOARTHRITIS
     Dosage: UNK UNK, PRN
     Route: 048
  3. ALPRAZOLAM [Concomitant]
     Indication: ANXIETY

REACTIONS (1)
  - ACUTE HEPATIC FAILURE [None]
